FAERS Safety Report 9250841 (Version 2)
Quarter: 2013Q4

REPORT INFORMATION
  Report Type: Report from Study
  Country: JP (occurrence: JP)
  Receive Date: 20130424
  Receipt Date: 20131029
  Transmission Date: 20140711
  Serious: Yes (Death, Hospitalization)
  Sender: FDA-Public Use
  Company Number: PHHY2009JP43575

PATIENT
  Age: 57 Year
  Sex: Female
  Weight: 50 kg

DRUGS (21)
  1. ICL670A [Suspect]
     Indication: IRON OVERLOAD
     Dosage: 1000 MG, QD
     Route: 048
     Dates: start: 20080708, end: 20090108
  2. ICL670A [Suspect]
     Dosage: 1000 MG, QD
     Route: 048
     Dates: start: 20090208, end: 20121001
  3. PLATELETS, HUMAN BLOOD [Concomitant]
     Dosage: 10 U, QW2
     Dates: start: 20080707, end: 20120930
  4. RED CELLS MAP [Concomitant]
     Dosage: 2 U, BIW
     Dates: start: 20080707, end: 20120930
  5. LOXONIN [Concomitant]
     Dosage: 60 MG, UNK
     Route: 048
     Dates: start: 20080704, end: 20120930
  6. PARIET [Concomitant]
     Dosage: 10 MG, UNK
     Route: 048
     Dates: start: 20080704, end: 20090707
  7. MUCOSTA [Concomitant]
     Dosage: 300 MG, UNK
     Route: 048
     Dates: start: 20080704, end: 20090707
  8. MUCOSTA [Concomitant]
     Dosage: 100 MG, UNK
     Dates: end: 20120930
  9. BONALON [Concomitant]
     Dosage: 35 MG, UNK
     Route: 048
     Dates: start: 20081218, end: 20090707
  10. BONALON [Concomitant]
     Dosage: 35 MG, UNK
     Dates: end: 20120930
  11. ALDACTONE [Concomitant]
     Dosage: 25 MG, UNK
     Route: 048
     Dates: start: 20080704, end: 20090707
  12. ALDACTONE [Concomitant]
     Dosage: 25 MG, UNK
     Dates: end: 20120930
  13. ARTIST [Concomitant]
     Dosage: 7.5 MG, UNK
     Route: 048
     Dates: start: 20080704, end: 20090707
  14. DIART [Concomitant]
     Dosage: 180 MG, UNK
     Route: 048
     Dates: start: 20080704, end: 20090707
  15. HUMALOG [Concomitant]
     Dosage: 30 IU, UNK
     Dates: start: 20030206, end: 20120930
  16. LANTUS [Concomitant]
     Dosage: 36 IU, UNK
     Dates: start: 20090206, end: 20120930
  17. MYSLEE [Concomitant]
     Dosage: 10 MG, UNK
     Route: 048
     Dates: start: 20090529, end: 20120930
  18. THYRADIN S [Concomitant]
     Dosage: 50 UG, UNK
     Route: 048
     Dates: start: 20110525, end: 20120930
  19. THYRADIN S [Concomitant]
     Dosage: 100 UG, UNK
     Route: 048
     Dates: start: 20110525, end: 20120930
  20. LIVALO [Concomitant]
     Dosage: 2 MG, UNK
     Route: 048
     Dates: start: 20111121, end: 20120930
  21. KAMAG G [Concomitant]
     Dosage: UKN

REACTIONS (5)
  - Meningitis bacterial [Fatal]
  - Cardiac failure congestive [Fatal]
  - Atrial fibrillation [Fatal]
  - Spinal compression fracture [Recovered/Resolved]
  - Pain [Unknown]
